FAERS Safety Report 17756696 (Version 3)
Quarter: 2021Q3

REPORT INFORMATION
  Report Type: Report from Study
  Country: ES (occurrence: ES)
  Receive Date: 20200507
  Receipt Date: 20210811
  Transmission Date: 20211014
  Serious: Yes (Hospitalization, Disabling, Other)
  Sender: FDA-Public Use
  Company Number: ES-VELOXIS PHARMACEUTICALS-2020VELES-000075

PATIENT
  Age: 74 Year
  Sex: Male
  Weight: 71 kg

DRUGS (40)
  1. MYCOPHENOLATE SODIUM [Suspect]
     Active Substance: MYCOPHENOLATE SODIUM
     Indication: IMMUNOSUPPRESSION
     Dosage: 1440 MILLIGRAM, QD
     Dates: start: 20190425
  2. ACICLOVIR [Concomitant]
     Active Substance: ACYCLOVIR
     Indication: MUCOSAL INFLAMMATION
     Dosage: UNK
     Dates: start: 20190522, end: 20190526
  3. RESINCALCIO [Concomitant]
     Active Substance: CALCIUM POLYSTYRENE SULFONATE
     Indication: HYPERKALAEMIA
     Dosage: UNK
     Dates: start: 20190526, end: 20190625
  4. ENVARSUS XR [Suspect]
     Active Substance: TACROLIMUS
     Dosage: 4 MILLIGRAM, QD
     Route: 048
     Dates: start: 20190828, end: 20191002
  5. CERTICAN [Suspect]
     Active Substance: EVEROLIMUS
     Indication: IMMUNOSUPPRESSION
     Dosage: UNK
     Route: 065
     Dates: start: 20200113
  6. MYCOPHENOLATE SODIUM [Suspect]
     Active Substance: MYCOPHENOLATE SODIUM
     Indication: PROPHYLAXIS AGAINST TRANSPLANT REJECTION
     Dosage: 720 MILLIGRAM, QD
     Dates: start: 20190520, end: 20190905
  7. CORTICOSTEROIDS [Suspect]
     Active Substance: CORTICOSTEROID NOS
     Dosage: 10 MILLIGRAM, QD
     Dates: start: 20190705, end: 20190806
  8. OMEPRAZOL [OMEPRAZOLE] [Concomitant]
     Active Substance: OMEPRAZOLE
     Indication: PROPHYLAXIS
     Dosage: UNK
     Dates: start: 20190424
  9. CEFAZOLINA [CEFAZOLIN] [Concomitant]
     Indication: PROPHYLAXIS
     Dosage: UNK
     Dates: start: 20190424, end: 20190424
  10. DOXAZOSINA NEO [Concomitant]
     Active Substance: DOXAZOSIN MESYLATE
     Indication: HYPERTENSION
     Dosage: UNK
     Dates: start: 20190508
  11. ADIRO [Concomitant]
     Active Substance: ASPIRIN
     Indication: ANTICOAGULANT THERAPY
     Dosage: UNK
     Dates: start: 20190522
  12. ATORVASTATIN [Concomitant]
     Active Substance: ATORVASTATIN
     Indication: HYPOLIPIDAEMIA
     Dosage: UNK
     Dates: start: 20190522
  13. INSULIN [Concomitant]
     Active Substance: INSULIN NOS
     Indication: DIABETES MELLITUS
     Dosage: UNK
     Dates: start: 20190424
  14. VALGANCICLOVIR. [Concomitant]
     Active Substance: VALGANCICLOVIR
     Indication: CYTOMEGALOVIRUS INFECTION
     Dosage: UNK
     Dates: start: 20190828, end: 20191107
  15. AMLODIPINE [Concomitant]
     Active Substance: AMLODIPINE BESYLATE
     Indication: HYPERTENSION
     Dosage: UNK
     Dates: start: 20190508
  16. ENVARSUS XR [Suspect]
     Active Substance: TACROLIMUS
     Dosage: 6 MILLIGRAM, QD
     Route: 048
     Dates: start: 20191003, end: 20191107
  17. ENVARSUS XR [Suspect]
     Active Substance: TACROLIMUS
     Dosage: 4 MILLIGRAM, QD
     Route: 048
     Dates: start: 20191107, end: 20200117
  18. CORTICOSTEROIDS [Suspect]
     Active Substance: CORTICOSTEROID NOS
     Indication: IMMUNOSUPPRESSION
     Dosage: 250 MILLIGRAM, QD
     Dates: start: 20190424, end: 20190424
  19. ENVARSUS XR [Suspect]
     Active Substance: TACROLIMUS
     Dosage: 14 MILLIGRAM, QD
     Route: 048
     Dates: start: 20190508, end: 20190516
  20. CORTICOSTEROIDS [Suspect]
     Active Substance: CORTICOSTEROID NOS
     Indication: PROPHYLAXIS AGAINST TRANSPLANT REJECTION
     Dosage: 20 MILLIGRAM, QD
     Dates: start: 20190425, end: 20190511
  21. CORTICOSTEROIDS [Suspect]
     Active Substance: CORTICOSTEROID NOS
     Dosage: 5 MILLIGRAM, QD
     Dates: start: 20190806
  22. COTRIMOXAZOL [Concomitant]
     Active Substance: SULFAMETHOXAZOLE\TRIMETHOPRIM
     Indication: PROPHYLAXIS
     Dosage: UNK
     Dates: start: 20190428, end: 20191107
  23. ARANESP [Concomitant]
     Active Substance: DARBEPOETIN ALFA
     Indication: ANAEMIA
     Dosage: UNK
     Dates: start: 20190424, end: 20191107
  24. ITRACONAZOLE. [Concomitant]
     Active Substance: ITRACONAZOLE
     Indication: PROPHYLAXIS
  25. ENVARSUS XR [Suspect]
     Active Substance: TACROLIMUS
     Dosage: 10 MILLIGRAM, QD
     Route: 048
     Dates: start: 20190503, end: 20190507
  26. CORTICOSTEROIDS [Suspect]
     Active Substance: CORTICOSTEROID NOS
     Dosage: 15 MILLIGRAM, QD
     Dates: start: 20190511, end: 20190606
  27. HYDROCORTISONE [HYDROCORTISONE ACETATE] [Concomitant]
     Active Substance: HYDROCORTISONE ACETATE
     Indication: HYPOALDOSTERONISM
     Dosage: UNK
     Dates: start: 20190507, end: 20191107
  28. RESINCALCIO [Concomitant]
     Active Substance: CALCIUM POLYSTYRENE SULFONATE
     Dosage: UNK
     Dates: start: 20190828, end: 20191002
  29. ENVARSUS XR [Suspect]
     Active Substance: TACROLIMUS
     Dosage: 12 MILLIGRAM, QD
     Route: 048
     Dates: start: 20190516, end: 20190522
  30. ENVARSUS XR [Suspect]
     Active Substance: TACROLIMUS
     Dosage: 8 MILLIGRAM, QD
     Route: 048
     Dates: start: 20190606, end: 20190705
  31. ENVARSUS XR [Suspect]
     Active Substance: TACROLIMUS
     Dosage: 6 MILLIGRAM, QD
     Route: 048
     Dates: start: 20190705, end: 20190828
  32. ABELCET [Concomitant]
     Active Substance: AMPHOTERICIN B\DIMYRISTOYLPHOSPHATIDYLCHOLINE, DL-\DIMYRISTOYLPHOSPHATIDYLGLYCEROL, DL-
     Indication: PROPHYLAXIS
     Dosage: UNK
     Dates: start: 20190428, end: 20190806
  33. MYCOSTATIN [Concomitant]
     Active Substance: NYSTATIN
     Indication: MUCOSAL INFLAMMATION
     Dosage: UNK
     Dates: start: 20190522, end: 20190526
  34. ENVARSUS XR [Suspect]
     Active Substance: TACROLIMUS
     Indication: PROPHYLAXIS AGAINST TRANSPLANT REJECTION
     Dosage: 4 MILLIGRAM, QD
     Route: 048
     Dates: start: 20190428, end: 20200128
  35. ENVARSUS XR [Suspect]
     Active Substance: TACROLIMUS
     Dosage: 4 MILLIGRAM, QD
     Route: 048
     Dates: start: 20190428, end: 20190503
  36. ENVARSUS XR [Suspect]
     Active Substance: TACROLIMUS
     Dosage: 13 MILLIGRAM, QD
     Route: 048
     Dates: start: 20190507, end: 20190508
  37. ENVARSUS XR [Suspect]
     Active Substance: TACROLIMUS
     Dosage: 10 MILLIGRAM, QD
     Route: 048
     Dates: start: 20190522, end: 20190606
  38. MYCOPHENOLATE SODIUM [Suspect]
     Active Substance: MYCOPHENOLATE SODIUM
     Dosage: 360 MILLIGRAM, QD
     Dates: start: 20190905, end: 20191002
  39. PREDNISONE. [Concomitant]
     Active Substance: PREDNISONE
     Indication: PRODUCT USED FOR UNKNOWN INDICATION
     Dosage: UNK
     Dates: start: 20190424
  40. VALGANCICLOVIR. [Concomitant]
     Active Substance: VALGANCICLOVIR
     Indication: PROPHYLAXIS
     Dosage: UNK
     Dates: start: 20190429, end: 20190806

REACTIONS (2)
  - Kidney transplant rejection [Recovered/Resolved]
  - Polyomavirus-associated nephropathy [Recovered/Resolved]

NARRATIVE: CASE EVENT DATE: 20191107
